FAERS Safety Report 15756204 (Version 1)
Quarter: 2018Q4

REPORT INFORMATION
  Report Type: Spontaneous
  Country: US (occurrence: US)
  Receive Date: 20181218
  Receipt Date: 20181218
  Transmission Date: 20190205
  Serious: No
  Sender: FDA-Public Use
  Company Number: None

PATIENT

DRUGS (2)
  1. MULTITRACE-4 NEONATAL [Suspect]
     Active Substance: CHROMIC CHLORIDE\CUPRIC SULFATE\MANGANESE SULFATE\ZINC SULFATE HEPTAHYDRATE
     Dosage: ?          OTHER ROUTE:INJECTION?
  2. MULTITRACE-5 [Suspect]
     Active Substance: CHROMIC CHLORIDE\CUPRIC SULFATE\MANGANESE SULFATE\SELENIOUS ACID\ZINC SULFATE HEPTAHYDRATE
     Dosage: ?          OTHER ROUTE:INJECTION?

REACTIONS (3)
  - Intercepted product storage error [None]
  - Product name confusion [None]
  - Product appearance confusion [None]
